FAERS Safety Report 8809425 (Version 2)
Quarter: 2014Q3

REPORT INFORMATION
  Report Type: Report from Study
  Country: US (occurrence: US)
  Receive Date: 20120926
  Receipt Date: 20140901
  Transmission Date: 20150326
  Serious: Yes (Death, Other)
  Sender: FDA-Public Use
  Company Number: US-ROCHE-1122991

PATIENT
  Sex: Female
  Weight: 59 kg

DRUGS (5)
  1. LEUCOVORIN [Concomitant]
     Active Substance: LEUCOVORIN
  2. AVASTIN [Suspect]
     Active Substance: BEVACIZUMAB
     Indication: BREAST CANCER FEMALE
     Route: 042
  3. HERCEPTIN [Suspect]
     Active Substance: TRASTUZUMAB
     Indication: BREAST CANCER FEMALE
     Route: 065
  4. OXALIPLATIN. [Concomitant]
     Active Substance: OXALIPLATIN
  5. 5-FU [Concomitant]
     Active Substance: FLUOROURACIL

REACTIONS (7)
  - Death [Fatal]
  - Oedema [Unknown]
  - Disease progression [Unknown]
  - Off label use [Unknown]
  - Pleural effusion [Unknown]
  - Ascites [Unknown]
  - Metastatic neoplasm [Unknown]
